FAERS Safety Report 4923046-3 (Version None)
Quarter: 2006Q1

REPORT INFORMATION
  Report Type: 
  Country: None (occurrence: None)
  Receive Date: 20060125
  Receipt Date: 20050623
  Transmission Date: 20060701
  Serious: Yes (Other)
  Sender: FDA-Public Use
  Company Number: HQWYE706927JUN05

PATIENT
  Age: 62 Year
  Sex: Male
  Weight: 86.26 kg

DRUGS (6)
  1. CORDARONE [Suspect]
     Indication: VENTRICULAR FIBRILLATION
     Dosage: 200 MG 1X PER 1 DAY, ORAL
     Route: 048
     Dates: start: 19980101, end: 20030101
  2. SOTALOL HCL [Concomitant]
  3. ISOSORBIDE MONONITRATE [Concomitant]
  4. COZAAR [Concomitant]
  5. COUMADIN [Concomitant]
  6. FUROSEMIDE [Concomitant]

REACTIONS (1)
  - BLINDNESS [None]
